FAERS Safety Report 8219908-4 (Version None)
Quarter: 2012Q1

REPORT INFORMATION
  Report Type: 
  Country: None (occurrence: None)
  Receive Date: 20120319
  Receipt Date: 20120312
  Transmission Date: 20120608
  Serious: Yes (Other)
  Sender: FDA-Public Use
  Company Number: US-PFIZER INC-2012060194

PATIENT
  Sex: Female

DRUGS (2)
  1. LYRICA [Suspect]
     Indication: PAIN IN EXTREMITY
     Dosage: 150 MG, 3X/DAY
     Route: 048
  2. COUMADIN [Suspect]
     Dosage: UNK

REACTIONS (5)
  - INFLUENZA [None]
  - WHITE BLOOD CELL COUNT INCREASED [None]
  - PAIN [None]
  - RENAL IMPAIRMENT [None]
  - DRUG LEVEL DECREASED [None]
